FAERS Safety Report 18525904 (Version 5)
Quarter: 2022Q3

REPORT INFORMATION
  Report Type: Spontaneous
  Country: JP (occurrence: JP)
  Receive Date: 20201120
  Receipt Date: 20220713
  Transmission Date: 20221026
  Serious: Yes (Hospitalization)
  Sender: FDA-Public Use
  Company Number: JP-GSKNCCC-CASE-01085349_AE-36925

PATIENT

DRUGS (15)
  1. NUCALA [Suspect]
     Active Substance: MEPOLIZUMAB
     Indication: Eosinophilic granulomatosis with polyangiitis
     Dosage: UNK
     Route: 058
  2. NUCALA [Suspect]
     Active Substance: MEPOLIZUMAB
     Dosage: 300 MG
     Route: 058
     Dates: start: 20201204, end: 20201204
  3. VONOPRAZAN FUMARATE [Concomitant]
     Active Substance: VONOPRAZAN FUMARATE
     Indication: Gastrooesophageal reflux disease
     Dosage: 20 MG, 1D
     Route: 048
  4. PRAVASTATIN NA TABLETS [Concomitant]
     Indication: Hyperlipidaemia
     Dosage: 20 MG, 1D
     Route: 048
  5. METHYCOBAL TABLET [Concomitant]
     Indication: Neuropathy peripheral
     Dosage: 1500 ?G, 1D
     Route: 048
  6. FOLIAMIN TABLETS [Concomitant]
     Dosage: 15 MG, 1D
     Route: 048
  7. TAMSULOSIN HYDROCHLORIDE [Concomitant]
     Active Substance: TAMSULOSIN HYDROCHLORIDE
     Indication: Benign prostatic hyperplasia
     Dosage: UNK, QD
     Route: 048
  8. TAMSULOSIN HYDROCHLORIDE [Concomitant]
     Active Substance: TAMSULOSIN HYDROCHLORIDE
     Indication: Dysuria
  9. BEOVA [Concomitant]
     Indication: Hypertonic bladder
     Dosage: UNK UNK, QD
  10. PREDONINE [Concomitant]
     Active Substance: PREDNISOLONE
     Dosage: UNK, BID
  11. LYRICA [Concomitant]
     Active Substance: PREGABALIN
     Indication: Neuralgia
     Dosage: UNK, BID
  12. ZOLPIDEM TARTRATE [Concomitant]
     Active Substance: ZOLPIDEM TARTRATE
     Indication: Insomnia
     Dosage: 5 MG, 1D
     Route: 048
  13. MOVICOL [Concomitant]
     Active Substance: POLYETHYLENE GLYCOL 3350\POTASSIUM CHLORIDE\SODIUM BICARBONATE\SODIUM CHLORIDE
     Indication: Constipation
     Dosage: 1 DF, 1D
     Route: 048
  14. BACTRAMIN COMBINATION TABLETS [Concomitant]
     Indication: Pneumocystis jirovecii pneumonia
     Dosage: 1 TABLET/DAY ON MONDAY, WEDNESDAY, FRIDAY
  15. ALENDRONATE SODIUM [Concomitant]
     Active Substance: ALENDRONATE SODIUM
     Indication: Osteoporosis
     Dosage: 35 MG, WE

REACTIONS (2)
  - Nervous system disorder [Recovering/Resolving]
  - Condition aggravated [Recovering/Resolving]

NARRATIVE: CASE EVENT DATE: 20201106
